FAERS Safety Report 11340234 (Version 1)
Quarter: 2015Q3

REPORT INFORMATION
  Report Type: Spontaneous
  Country: US (occurrence: US)
  Receive Date: 20150805
  Receipt Date: 20150805
  Transmission Date: 20151125
  Serious: Yes (Other)
  Sender: FDA-Public Use
  Company Number: US-TEVA-582228USA

PATIENT
  Sex: Female

DRUGS (5)
  1. AMPYRA [Suspect]
     Active Substance: DALFAMPRIDINE
     Route: 065
  2. COPAXONE [Suspect]
     Active Substance: GLATIRAMER ACETATE
     Indication: MULTIPLE SCLEROSIS
     Dates: start: 2014
  3. OXYBUTYNIN [Concomitant]
     Active Substance: OXYBUTYNIN
     Route: 065
  4. NEURONTIN [Concomitant]
     Active Substance: GABAPENTIN
     Route: 065
  5. EFFEXOR [Concomitant]
     Active Substance: VENLAFAXINE HYDROCHLORIDE
     Route: 065

REACTIONS (15)
  - Feeling cold [Unknown]
  - Peroneal nerve palsy [Unknown]
  - Multiple sclerosis relapse [Unknown]
  - Tremor [Unknown]
  - Drug ineffective [Unknown]
  - Seizure [Unknown]
  - Muscle spasms [Unknown]
  - Hypoaesthesia [Unknown]
  - Abasia [Unknown]
  - Bruxism [Unknown]
  - Opisthotonus [Unknown]
  - Tooth infection [Unknown]
  - Fall [Unknown]
  - Muscular weakness [Unknown]
  - Chills [Unknown]

NARRATIVE: CASE EVENT DATE: 2015
